FAERS Safety Report 22627007 (Version 9)
Quarter: 2024Q1

REPORT INFORMATION
  Report Type: Spontaneous
  Country: DE (occurrence: DE)
  Receive Date: 20230622
  Receipt Date: 20240218
  Transmission Date: 20240410
  Serious: Yes (Hospitalization, Other)
  Sender: FDA-Public Use
  Company Number: DE-SAMSUNG BIOEPIS-SB-2023-1282

PATIENT
  Age: 68 Year
  Sex: Male
  Weight: 107 kg

DRUGS (21)
  1. DOCETAXEL [Suspect]
     Active Substance: DOCETAXEL\DOCETAXEL ANHYDROUS
     Indication: Oesophageal adenocarcinoma
     Dosage: 112 MILLIGRAM
     Route: 042
     Dates: start: 20230425
  2. DOCETAXEL [Suspect]
     Active Substance: DOCETAXEL\DOCETAXEL ANHYDROUS
     Dosage: 114 MILLIGRAM
     Route: 042
     Dates: start: 20230425
  3. DOCETAXEL [Suspect]
     Active Substance: DOCETAXEL\DOCETAXEL ANHYDROUS
     Dosage: 50 MILLIGRAM
     Route: 042
     Dates: start: 20230425
  4. LEUCOVORIN [Suspect]
     Active Substance: LEUCOVORIN\LEUCOVORIN CALCIUM
     Indication: HER2 positive gastric cancer
     Dosage: 450 MILLIGRAM
     Route: 042
     Dates: start: 20230425
  5. LEUCOVORIN [Suspect]
     Active Substance: LEUCOVORIN\LEUCOVORIN CALCIUM
     Indication: HER2 positive gastric cancer
     Dosage: 200 MILLIGRAM
     Route: 042
     Dates: start: 20230425
  6. LEUCOVORIN [Suspect]
     Active Substance: LEUCOVORIN\LEUCOVORIN CALCIUM
     Dosage: 400 MILLIGRAM
     Route: 042
     Dates: start: 20230425
  7. LEUCOVORIN [Suspect]
     Active Substance: LEUCOVORIN\LEUCOVORIN CALCIUM
     Dosage: 350 MILLIGRAM
     Route: 042
  8. ONTRUZANT [Suspect]
     Active Substance: TRASTUZUMAB-DTTB
     Indication: Oesophageal adenocarcinoma
     Dosage: 8 MILLIGRAM
     Route: 042
     Dates: start: 20230424
  9. ONTRUZANT [Suspect]
     Active Substance: TRASTUZUMAB-DTTB
     Dosage: 642 MILLIGRAM
     Route: 042
     Dates: start: 20230424
  10. ONTRUZANT [Suspect]
     Active Substance: TRASTUZUMAB-DTTB
     Dosage: 896 MILLIGRAM
     Route: 042
     Dates: start: 20230424
  11. OXALIPLATIN [Suspect]
     Active Substance: OXALIPLATIN
     Indication: Oesophageal adenocarcinoma
     Dosage: 1900 MILLIGRAM
     Route: 042
     Dates: start: 20230425
  12. OXALIPLATIN [Suspect]
     Active Substance: OXALIPLATIN
     Dosage: 195 MILLIGRAM
     Route: 042
     Dates: start: 20230425
  13. OXALIPLATIN [Suspect]
     Active Substance: OXALIPLATIN
     Dosage: 85 MILLIGRAM
     Route: 042
     Dates: start: 20230425
  14. OXALIPLATIN [Suspect]
     Active Substance: OXALIPLATIN
     Dosage: 190 MILLIGRAM
     Route: 042
     Dates: start: 20230425
  15. OXALIPLATIN [Suspect]
     Active Substance: OXALIPLATIN
     Dosage: 155 MILLIGRAM
     Route: 042
  16. PEMBROLIZUMAB [Suspect]
     Active Substance: PEMBROLIZUMAB
     Indication: Oesophageal adenocarcinoma
     Dosage: 200 MILLIGRAM
     Route: 042
     Dates: start: 20230424
  17. FLUOROURACIL [Suspect]
     Active Substance: FLUOROURACIL
     Indication: Oesophageal adenocarcinoma
     Dosage: 5950 MILLIGRAM
     Route: 042
     Dates: start: 20230425
  18. FLUOROURACIL [Suspect]
     Active Substance: FLUOROURACIL
     Dosage: 2600 MILLIGRAM
     Route: 042
     Dates: start: 20230425
  19. FLUOROURACIL [Suspect]
     Active Substance: FLUOROURACIL
     Dosage: 5850 MILLIGRAM
     Route: 042
     Dates: start: 20230425
  20. FLUOROURACIL [Suspect]
     Active Substance: FLUOROURACIL
     Dosage: 4700 MILLIGRAM
     Route: 042
  21. LEUCOVORIN CALCIUM [Suspect]
     Active Substance: LEUCOVORIN CALCIUM
     Indication: HER2 positive gastric cancer
     Dosage: 200 MILLIGRAM
     Route: 042
     Dates: start: 20230425

REACTIONS (5)
  - Gastric stenosis [Recovered/Resolved]
  - Diarrhoea [Recovered/Resolved]
  - Immune-mediated enterocolitis [Unknown]
  - Product use in unapproved indication [Unknown]
  - Off label use [Unknown]

NARRATIVE: CASE EVENT DATE: 20230425
